FAERS Safety Report 6631063-0 (Version None)
Quarter: 2010Q1

REPORT INFORMATION
  Report Type: 
  Country: None (occurrence: None)
  Receive Date: 20100309
  Receipt Date: 20100226
  Transmission Date: 20100710
  Serious: Yes (Congenital Anomaly, Other)
  Sender: FDA-Public Use
  Company Number: 8047071

PATIENT
  Sex: Male
  Weight: 2.7 kg

DRUGS (4)
  1. KEPPRA [Suspect]
     Dosage: (2000 MG, BID TRANSPLACENTAL)
     Route: 064
     Dates: start: 20081116
  2. PRENATAL VITAMINS /01549301/ [Concomitant]
  3. FOLIC ACID [Concomitant]
  4. MUCINEX [Concomitant]

REACTIONS (3)
  - FOETAL CEREBROVASCULAR DISORDER [None]
  - GROSS MOTOR DELAY [None]
  - MATERNAL DRUGS AFFECTING FOETUS [None]
